APPROVED DRUG PRODUCT: BACTERIOSTATIC SODIUM CHLORIDE 0.9% IN PLASTIC CONTAINER
Active Ingredient: SODIUM CHLORIDE
Strength: 270MG/30ML (9MG/ML)
Dosage Form/Route: SOLUTION;INJECTION
Application: A088909 | Product #001
Applicant: ABRAXIS PHARMACEUTICAL PRODUCTS
Approved: Feb 7, 1985 | RLD: No | RS: No | Type: DISCN